FAERS Safety Report 8135954-3 (Version None)
Quarter: 2012Q1

REPORT INFORMATION
  Report Type: 
  Country: None (occurrence: None)
  Receive Date: 20120214
  Receipt Date: 20120209
  Transmission Date: 20120608
  Serious: Yes (Hospitalization)
  Sender: FDA-Public Use
  Company Number: US-SHIRE-ALL1-2012-00784

PATIENT
  Sex: Male

DRUGS (3)
  1. ELAPRASE [Suspect]
     Indication: MUCOPOLYSACCHARIDOSIS II
     Dosage: UNK, UNKNOWN
     Route: 041
  2. PREDNISONE TAB [Concomitant]
     Indication: PREMEDICATION
     Dosage: UNK, UNKNOWN
     Route: 065
  3. ANITHISTAMINE [Concomitant]
     Indication: PREMEDICATION
     Dosage: UNK, UNKNOWN
     Route: 065

REACTIONS (2)
  - LIP SWELLING [None]
  - INCREASED UPPER AIRWAY SECRETION [None]
